FAERS Safety Report 18278891 (Version 1)
Quarter: 2020Q3

REPORT INFORMATION
  Report Type: Spontaneous
  Country: US (occurrence: US)
  Receive Date: 20200917
  Receipt Date: 20200917
  Transmission Date: 20201103
  Serious: Yes (Death, Hospitalization, Other)
  Sender: FDA-Public Use
  Company Number: US-PURDUE-USA-2020-0166579

PATIENT
  Sex: Female

DRUGS (4)
  1. OXYCONTIN [Suspect]
     Active Substance: OXYCODONE HYDROCHLORIDE
     Dosage: 5 MG, TID
     Route: 048
  2. OXYCONTIN [Suspect]
     Active Substance: OXYCODONE HYDROCHLORIDE
     Indication: PRODUCT USED FOR UNKNOWN INDICATION
     Dosage: UNK
     Route: 048
     Dates: start: 2006
  3. OXYCONTIN [Suspect]
     Active Substance: OXYCODONE HYDROCHLORIDE
     Dosage: 5 MG, UNK
     Route: 048
  4. OXYCONTIN [Suspect]
     Active Substance: OXYCODONE HYDROCHLORIDE
     Dosage: 5 MG, QID
     Route: 048

REACTIONS (16)
  - Pneumothorax [Unknown]
  - Injury [Unknown]
  - Weight decreased [Unknown]
  - Pain in extremity [Unknown]
  - Drug dependence [Unknown]
  - Stress [Unknown]
  - Depression [Unknown]
  - Fall [Unknown]
  - Death [Fatal]
  - Upper limb fracture [Unknown]
  - Mental impairment [Unknown]
  - Disorientation [Unknown]
  - Pain [Unknown]
  - Unevaluable event [Unknown]
  - Emotional distress [Unknown]
  - Mobility decreased [Unknown]

NARRATIVE: CASE EVENT DATE: 20111125
